FAERS Safety Report 26124364 (Version 1)
Quarter: 2025Q4

REPORT INFORMATION
  Report Type: Spontaneous
  Country: US (occurrence: US)
  Receive Date: 20251205
  Receipt Date: 20251205
  Transmission Date: 20260118
  Serious: Yes (Life-Threatening, Hospitalization, Other)
  Sender: UNICHEM
  Company Number: US-UNICHEM LABORATORIES LIMITED-UNI-2025-US-004016

PATIENT

DRUGS (2)
  1. METFORMIN [Suspect]
     Active Substance: METFORMIN HYDROCHLORIDE
     Indication: Type 2 diabetes mellitus
     Dosage: 1500 MILLIGRAM
     Route: 065
  2. EMPAGLIFLOZIN [Concomitant]
     Active Substance: EMPAGLIFLOZIN
     Indication: Type 2 diabetes mellitus
     Dosage: UNK
     Route: 065

REACTIONS (8)
  - Shock [Recovered/Resolved]
  - Multiple organ dysfunction syndrome [Unknown]
  - Metabolic acidosis [Recovering/Resolving]
  - Positive airway pressure therapy [Unknown]
  - Toxicity to various agents [Unknown]
  - Lactic acidosis [Recovering/Resolving]
  - Acute kidney injury [Unknown]
  - Liver injury [Unknown]
